FAERS Safety Report 8806951 (Version 2)
Quarter: 2015Q2

REPORT INFORMATION
  Report Type: Report from Study
  Country: US (occurrence: US)
  Receive Date: 20120925
  Receipt Date: 20150622
  Transmission Date: 20150821
  Serious: Yes (Other)
  Sender: FDA-Public Use
  Company Number: US-ROCHE-1123494

PATIENT
  Sex: Male

DRUGS (8)
  1. LOPRESSOR [Concomitant]
     Active Substance: METOPROLOL TARTRATE
     Route: 065
  2. MONOPRIL [Concomitant]
     Active Substance: FOSINOPRIL SODIUM
  3. INTERLEUKIN-2 [Concomitant]
     Active Substance: ALDESLEUKIN
  4. LASIX [Concomitant]
     Active Substance: FUROSEMIDE
     Route: 065
  5. TYLENOL [Concomitant]
     Active Substance: ACETAMINOPHEN
  6. ALLEGRA [Concomitant]
     Active Substance: FEXOFENADINE HYDROCHLORIDE
  7. AVASTIN [Suspect]
     Active Substance: BEVACIZUMAB
     Indication: RENAL CANCER
     Route: 065
  8. COUMADIN [Concomitant]
     Active Substance: WARFARIN SODIUM
     Route: 048

REACTIONS (8)
  - Fatigue [Unknown]
  - Product use issue [Unknown]
  - Ascites [Unknown]
  - Disease progression [Unknown]
  - Rash [Unknown]
  - Oral pain [Unknown]
  - Pruritus [Unknown]
  - Oedema peripheral [Unknown]
